FAERS Safety Report 9196141 (Version 1)
Quarter: 2013Q1

REPORT INFORMATION
  Report Type: Spontaneous
  Country: US (occurrence: None)
  Receive Date: 20120705
  Receipt Date: 20120705
  Transmission Date: 20140127
  Serious: Yes (Hospitalization)
  Sender: FDA-Public Use
  Company Number: US-CYPR-2012-000019

PATIENT
  Age: 64 Year
  Sex: Female
  Weight: 98 kg

DRUGS (9)
  1. CLOPIDOGREL [Suspect]
     Indication: ANTIPLATELET THERAPY
     Route: 048
     Dates: start: 20110217, end: 20120406
  2. CLOPIDOGREL [Suspect]
     Route: 048
     Dates: start: 20110217, end: 20120406
  3. ASPIRIN [Suspect]
     Indication: CORONARY ARTERY DISEASE
     Route: 048
     Dates: start: 20100203, end: 20120407
  4. LISINOPRIL [Concomitant]
  5. ATENOLOL [Concomitant]
  6. NIACIN [Concomitant]
  7. LEVOTHROID [Concomitant]
  8. CRESTOR [Concomitant]
  9. CYPHER [Concomitant]

REACTIONS (1)
  - Acute myocardial infarction [None]
